FAERS Safety Report 18152913 (Version 1)
Quarter: 2020Q3

REPORT INFORMATION
  Report Type: Spontaneous
  Country: PY (occurrence: PY)
  Receive Date: 20200815
  Receipt Date: 20200815
  Transmission Date: 20201103
  Serious: Yes (Death)
  Sender: FDA-Public Use
  Company Number: PY-ROCHE-2648861

PATIENT
  Age: 67 Year
  Sex: Female

DRUGS (1)
  1. TECENTRIQ [Suspect]
     Active Substance: ATEZOLIZUMAB
     Indication: TRIPLE NEGATIVE BREAST CANCER
     Dosage: FORM STRENGTH: 1200 MG/ 20 ML
     Route: 041
     Dates: start: 20200629

REACTIONS (4)
  - Death [Fatal]
  - Epistaxis [Unknown]
  - Platelet disorder [Recovered/Resolved]
  - Contusion [Unknown]
